FAERS Safety Report 7488597-9 (Version None)
Quarter: 2011Q2

REPORT INFORMATION
  Report Type: 
  Country: None (occurrence: None)
  Receive Date: 20110518
  Receipt Date: 20110509
  Transmission Date: 20111010
  Serious: Yes (Other)
  Sender: FDA-Public Use
  Company Number: CN-ASTRAZENECA-2011SE27648

PATIENT
  Age: 69 Year
  Sex: Female

DRUGS (2)
  1. BUPIVACAINE HCL [Suspect]
     Indication: SPINAL ANAESTHESIA
     Route: 037
  2. BUPIVACAINE HCL [Suspect]
     Indication: EPIDURAL ANAESTHESIA
     Route: 008

REACTIONS (4)
  - BONE PAIN [None]
  - SPINAL CORD OEDEMA [None]
  - SPINAL CORD HERNIATION [None]
  - HYPOAESTHESIA [None]
